FAERS Safety Report 9889179 (Version 2)
Quarter: 2014Q1

REPORT INFORMATION
  Report Type: Spontaneous
  Country: IT (occurrence: IT)
  Receive Date: 20140211
  Receipt Date: 20140304
  Transmission Date: 20141002
  Serious: Yes (Hospitalization, Other)
  Sender: FDA-Public Use
  Company Number: IT-ELI_LILLY_AND_COMPANY-IT201401011026

PATIENT
  Age: 86 Year
  Sex: Male

DRUGS (7)
  1. HUMALOG LISPRO [Suspect]
     Indication: PRODUCT USED FOR UNKNOWN INDICATION
     Dosage: 26 IU, QD
     Route: 065
     Dates: start: 20140111, end: 20140111
  2. LANTUS [Suspect]
     Indication: PRODUCT USED FOR UNKNOWN INDICATION
     Dosage: 12 IU, QD
     Route: 065
     Dates: start: 20140111, end: 20140111
  3. TAPAZOLE [Concomitant]
  4. NORVASC [Concomitant]
  5. APROVEL [Concomitant]
  6. TORVAST [Concomitant]
  7. SINTROM [Concomitant]

REACTIONS (2)
  - Convulsion [Recovered/Resolved]
  - Hypoglycaemia [Recovered/Resolved]
